FAERS Safety Report 18309517 (Version 1)
Quarter: 2020Q3

REPORT INFORMATION
  Report Type: Spontaneous
  Country: CN (occurrence: CN)
  Receive Date: 20200925
  Receipt Date: 20200925
  Transmission Date: 20201103
  Serious: Yes (Other)
  Sender: FDA-Public Use
  Company Number: CN-BAXTER-2020BAX019380

PATIENT
  Age: 67 Year
  Sex: Female
  Weight: 81 kg

DRUGS (4)
  1. ENDOXAN [Suspect]
     Active Substance: CYCLOPHOSPHAMIDE
     Indication: MUCINOUS BREAST CARCINOMA
     Dosage: CYCLOPHOSPHAMIDE FOR INJECTION 1G + NORMAL SALINE 500ML DAY2
     Route: 041
     Dates: start: 20200830, end: 20200830
  2. AOMINGRUN [Suspect]
     Active Substance: DOCETAXEL
     Indication: MUCINOUS BREAST CARCINOMA
     Dosage: AOMINGRUN 100 MG + NORMAL SALINE 250ML, DAY 1
     Route: 041
     Dates: start: 20200829, end: 20200829
  3. 0.9% SODIUM CHLORIDE INJECTION [Suspect]
     Active Substance: SODIUM CHLORIDE
     Indication: MEDICATION DILUTION
     Dosage: CYCLOPHOSPHAMIDE FOR INJECTION 1G + NORMAL SALINE 500ML, DAY2
     Route: 041
     Dates: start: 20200830, end: 20200830
  4. 0.9% SODIUM CHLORIDE INJECTION [Suspect]
     Active Substance: SODIUM CHLORIDE
     Dosage: AOMINGRUN 100 MG + NORMAL SALINE 250ML, DAY 1
     Route: 041
     Dates: start: 20200829, end: 20200829

REACTIONS (1)
  - Myelosuppression [Recovered/Resolved]

NARRATIVE: CASE EVENT DATE: 20200909
